FAERS Safety Report 17006234 (Version 1)
Quarter: 2019Q4

REPORT INFORMATION
  Report Type: Spontaneous
  Country: FR (occurrence: FR)
  Receive Date: 20191107
  Receipt Date: 20191107
  Transmission Date: 20200122
  Serious: No
  Sender: FDA-Public Use
  Company Number: FR-PHOTOCURE ASA-HX-PM-FR-190900003

PATIENT

DRUGS (1)
  1. CYSVIEW [Suspect]
     Active Substance: HEXAMINOLEVULINATE HYDROCHLORIDE
     Dosage: 85 MG MILLIGRAM(S), UNK
     Route: 043
     Dates: start: 20190905, end: 20190905

REACTIONS (1)
  - Drug ineffective [Unknown]

NARRATIVE: CASE EVENT DATE: 20190905
